FAERS Safety Report 5765372-4 (Version None)
Quarter: 2008Q2

REPORT INFORMATION
  Report Type: 
  Country: None (occurrence: None)
  Receive Date: 20080609
  Receipt Date: 20080609
  Transmission Date: 20081010
  Serious: Yes (Other)
  Sender: FDA-Public Use
  Company Number: None

PATIENT
  Age: 31 Year
  Sex: Male
  Weight: 90.7194 kg

DRUGS (1)
  1. LISTERINE WHITENING  32FL OZ-1 QT- 946 ML  JOHNSON + JOHNSON/MCNEIL-PP [Suspect]
     Indication: DENTAL DISORDER PROPHYLAXIS
     Dosage: 15 ML  2 TIMES A DAY PO
     Route: 048
     Dates: start: 20080401, end: 20080601

REACTIONS (2)
  - ORAL MUCOSAL EXFOLIATION [None]
  - PHARMACEUTICAL PRODUCT COMPLAINT [None]
